FAERS Safety Report 25137866 (Version 1)
Quarter: 2025Q1

REPORT INFORMATION
  Report Type: Spontaneous
  Country: IT (occurrence: IT)
  Receive Date: 20250329
  Receipt Date: 20250329
  Transmission Date: 20250409
  Serious: Yes (Hospitalization, Other)
  Sender: AUROBINDO
  Company Number: IT-MINISAL02-1030296

PATIENT
  Age: 57 Year
  Sex: Male
  Weight: 71 kg

DRUGS (10)
  1. LEVETIRACETAM [Suspect]
     Active Substance: LEVETIRACETAM
     Indication: Prophylaxis
     Dosage: 1500 MILLIGRAM, TWO TIMES A DAY [LEVETIRACETAM CP 1500 MG OGNI 12 ORE]
     Route: 048
  2. OXACILLIN SODIUM [Suspect]
     Active Substance: OXACILLIN SODIUM
     Indication: Endocarditis staphylococcal
     Route: 042
  3. RIFAMPIN [Suspect]
     Active Substance: RIFAMPIN
     Indication: Endocarditis staphylococcal
     Dosage: 300 MILLIGRAM, 3 TIMES A DAY [RIFAMPICINA PER OS 300 MG OGNI 8 ORE]
     Route: 048
  4. TAMSULOSIN [Concomitant]
     Active Substance: TAMSULOSIN
     Indication: Benign prostatic hyperplasia
     Dosage: 0.4 MILLIGRAM, ONCE A DAY [TAMSULOSINA CP 0,4 MG OGNI 24 ORE]
     Route: 048
  5. LANSOPRAZOLE [Concomitant]
     Active Substance: LANSOPRAZOLE
     Indication: Prophylaxis
     Dosage: 30 MILLIGRAM, ONCE A DAY [LANSOPRAZOLO CP 30 MG OGNI 24 ORE]
     Route: 048
  6. SERTRALINE [Concomitant]
     Active Substance: SERTRALINE HYDROCHLORIDE
     Indication: Mood altered
     Dosage: 50 MILLIGRAM, ONCE A DAY [SERTRALINA CP 50 MG OGNI 24 ORE]
     Route: 048
  7. BISOPROLOL FUMARATE [Concomitant]
     Active Substance: BISOPROLOL FUMARATE
     Indication: Cardiac disorder
     Dosage: 2.5 MILLIGRAM, TWO TIMES A DAY [BISOPROLOLO CP 2,5 MG OGNI 12 ORE]
     Route: 048
     Dates: start: 2016
  8. EZETIMIBE [Concomitant]
     Active Substance: EZETIMIBE
     Indication: Dyslipidaemia
     Dosage: 10 MILLIGRAM, ONCE A DAY [EZETIMIBE 10 MG OGNI 24 ORE]
     Route: 048
  9. ROSUVASTATIN [Concomitant]
     Active Substance: ROSUVASTATIN
     Indication: Dyslipidaemia
     Dosage: 10 MILLIGRAM, ONCE A DAY [ROSUVASTATINA 10 MG OGNI 24 ORE]
     Route: 048
     Dates: start: 20250301
  10. FERROUS SULFATE [Concomitant]
     Active Substance: FERROUS SULFATE
     Indication: Iron deficiency
     Dosage: 80 MILLIGRAM, ONCE A DAY [FERROSO SOLFATO CP 80 MG OGNI 24 ORE]
     Route: 048
     Dates: start: 20250213

REACTIONS (6)
  - Renal failure [Recovering/Resolving]
  - Drug reaction with eosinophilia and systemic symptoms [Recovering/Resolving]
  - Rash morbilliform [Recovering/Resolving]
  - Periorbital oedema [Recovering/Resolving]
  - Lymphadenopathy [Recovering/Resolving]
  - Eosinophilia [Recovering/Resolving]

NARRATIVE: CASE EVENT DATE: 20250304
